FAERS Safety Report 12506507 (Version 1)
Quarter: 2016Q2

REPORT INFORMATION
  Report Type: Spontaneous
  Country: US (occurrence: US)
  Receive Date: 20160628
  Receipt Date: 20160628
  Transmission Date: 20160815
  Serious: No
  Sender: FDA-Public Use
  Company Number: US-ELI_LILLY_AND_COMPANY-US201606006445

PATIENT
  Age: 51 Year
  Sex: Female

DRUGS (4)
  1. HUMALOG [Suspect]
     Active Substance: INSULIN LISPRO
     Dosage: 20 U, TID
     Route: 065
  2. HUMALOG [Suspect]
     Active Substance: INSULIN LISPRO
     Indication: TYPE 2 DIABETES MELLITUS
     Dosage: 2 U, PRN
     Route: 065
     Dates: start: 2003
  3. LEVEMIR [Concomitant]
     Active Substance: INSULIN DETEMIR
  4. NOVOLOG [Concomitant]
     Active Substance: INSULIN ASPART

REACTIONS (2)
  - Underdose [Unknown]
  - Blood glucose increased [Unknown]

NARRATIVE: CASE EVENT DATE: 20160611
